FAERS Safety Report 5575679-1 (Version None)
Quarter: 2007Q4

REPORT INFORMATION
  Report Type: 
  Country: None (occurrence: None)
  Receive Date: 20071221
  Receipt Date: 20071217
  Transmission Date: 20080405
  Serious: Yes (Death)
  Sender: FDA-Public Use
  Company Number: E2020-01953-SPO-JP

PATIENT
  Age: 83 Year
  Sex: Female

DRUGS (6)
  1. ARICEPT [Suspect]
     Indication: DEMENTIA
     Dosage: 5 MG, 1 IN 1 D, ORAL
     Route: 048
     Dates: end: 20071127
  2. ADALAT CC [Concomitant]
  3. ALPRAZOLAM [Concomitant]
  4. KARY UNI (PIRENOXINE) [Concomitant]
  5. KERATINAMIN (UREA) [Concomitant]
  6. INFLUENZA HA VACCINE (INFLUENZA VACCINE) [Concomitant]

REACTIONS (3)
  - AORTIC ANEURYSM RUPTURE [None]
  - FALL [None]
  - FEELING COLD [None]
